FAERS Safety Report 12776578 (Version 1)
Quarter: 2016Q3

REPORT INFORMATION
  Report Type: Spontaneous
  Country: DE (occurrence: DE)
  Receive Date: 20160923
  Receipt Date: 20160923
  Transmission Date: 20161109
  Serious: Yes (Hospitalization, Disabling)
  Sender: FDA-Public Use
  Company Number: DE-MYLANLABS-2016M1040182

PATIENT

DRUGS (7)
  1. ASPIRIN. [Concomitant]
     Active Substance: ASPIRIN
     Dosage: 100 MG, QD (1-0-0)
  2. ATORVASTATIN [Suspect]
     Active Substance: ATORVASTATIN
     Indication: TYPE IIA HYPERLIPIDAEMIA
     Dosage: 10 MG, UNK
  3. METHOTREXATE (METHOTREXATE SODIUM) [Concomitant]
     Active Substance: METHOTREXATE SODIUM
     Dosage: 10 MG, QW (DAILY DOSE: 10 MG MILLIGRAM(S) EVERY WEEK)
  4. FOLSAEURE [Concomitant]
     Active Substance: FOLIC ACID
     Dosage: 1 DF, QW (DAILY DOSE: 1 DF DOSAGE FORM EVERY WEEK)
  5. PREDNISOLONE. [Concomitant]
     Active Substance: PREDNISOLONE
     Dosage: 1 MG, QD (0-0-1)
  6. VERAPAMIL [Concomitant]
     Active Substance: VERAPAMIL HYDROCHLORIDE
     Dosage: 80 MG, TID (DAILY DOSE: 240 MG MILLIGRAM(S) EVERY DAY)
  7. DEKRISTOL [Concomitant]
     Active Substance: CHOLECALCIFEROL
     Dosage: 1 DF, BIWEEKLY (DAILY DOSE: 1 DF DOSAGE FORM EVERY 2 WEEK)

REACTIONS (6)
  - Tendon rupture [Unknown]
  - Debridement [Unknown]
  - Impaired healing [Unknown]
  - Tendon discomfort [Unknown]
  - Wound [Unknown]
  - Tendon pain [Unknown]

NARRATIVE: CASE EVENT DATE: 201506
